FAERS Safety Report 9943684 (Version 1)
Quarter: 2014Q1

REPORT INFORMATION
  Report Type: Report from Study
  Country: US (occurrence: US)
  Receive Date: 20140303
  Receipt Date: 20140303
  Transmission Date: 20141002
  Serious: Yes (Other)
  Sender: FDA-Public Use
  Company Number: US-ABBVIE-13P-163-1048031-00

PATIENT
  Sex: Male
  Weight: 91.71 kg

DRUGS (6)
  1. HUMIRA [Suspect]
     Indication: PSORIATIC ARTHROPATHY
     Dates: start: 2011
  2. SULFASALAZINE [Concomitant]
     Indication: PAIN
  3. NAPROXEN [Concomitant]
     Indication: PAIN
  4. PREDNISONE [Concomitant]
     Indication: PSORIATIC ARTHROPATHY
     Dates: start: 2005
  5. METROPOLOL [Concomitant]
     Indication: HYPERTENSION
  6. HCTZ [Concomitant]
     Indication: FLUID RETENTION

REACTIONS (1)
  - Cataract [Recovering/Resolving]
